FAERS Safety Report 16195262 (Version 1)
Quarter: 2019Q2

REPORT INFORMATION
  Report Type: Spontaneous
  Country: US (occurrence: US)
  Receive Date: 20190415
  Receipt Date: 20190415
  Transmission Date: 20190711
  Serious: Yes (Other)
  Sender: FDA-Public Use
  Company Number: US-CIPLA LTD.-2019US01885

PATIENT

DRUGS (15)
  1. IRINOTECAN [Suspect]
     Active Substance: IRINOTECAN
     Dosage: 126 MILLIGRAM/SQ. METER, LAST CYCLE, ZFOLFIRI
     Route: 065
  2. 5-FU                               /00098801/ [Suspect]
     Active Substance: FLUOROURACIL
     Indication: COLON CANCER RECURRENT
     Dosage: UNK, FOLFIRI+BEVACIZUMAB
     Route: 065
  3. LEUCOVORIN                         /00566701/ [Suspect]
     Active Substance: LEUCOVORIN
     Dosage: UNK, ZFOLFIRI
     Route: 065
  4. IRINOTECAN [Suspect]
     Active Substance: IRINOTECAN
     Indication: COLON CANCER RECURRENT
     Dosage: 144 MILLIGRAM/SQ. METER, CYCLE 1, ZFOLFIRI
     Route: 065
  5. BEVACIZUMAB. [Suspect]
     Active Substance: BEVACIZUMAB
     Indication: COLON CANCER METASTATIC
     Dosage: UNK, FOLFIRI+BEVACIZUMAB
     Route: 065
  6. ZALTRAP [Suspect]
     Active Substance: ZIV-AFLIBERCEPT
     Indication: COLON CANCER RECURRENT
     Dosage: 4 MILLIGRAM/KILOGRAM, LAST CYCLE, ZFOLFIRI
     Route: 065
  7. IRINOTECAN [Suspect]
     Active Substance: IRINOTECAN
     Indication: COLON CANCER METASTATIC
     Dosage: UNK, FOLFIRI+BEVACIZUMAB
     Route: 065
  8. 5-FU                               /00098801/ [Suspect]
     Active Substance: FLUOROURACIL
     Dosage: 1800 MILLIGRAM/SQ. METER, LAST CYCLE, ZFOLFIRI
     Route: 065
  9. OXALIPLATIN. [Suspect]
     Active Substance: OXALIPLATIN
     Indication: COLON CANCER METASTATIC
     Dosage: UNK, FOLFOX
     Route: 065
  10. 5-FU                               /00098801/ [Suspect]
     Active Substance: FLUOROURACIL
     Indication: COLON CANCER METASTATIC
     Dosage: UNK, FOLFOX
     Route: 065
  11. BEVACIZUMAB. [Suspect]
     Active Substance: BEVACIZUMAB
     Indication: COLON CANCER RECURRENT
  12. ZALTRAP [Suspect]
     Active Substance: ZIV-AFLIBERCEPT
     Indication: COLON CANCER METASTATIC
     Dosage: 4 MILLIGRAM/KILOGRAM, CYCLE 1, ZFOLFIRI
     Route: 065
  13. LEUCOVORIN                         /00566701/ [Suspect]
     Active Substance: LEUCOVORIN
     Indication: COLON CANCER RECURRENT
     Dosage: UNK, FOLFIRI+BEVACIZUMAB
     Route: 065
  14. 5-FU                               /00098801/ [Suspect]
     Active Substance: FLUOROURACIL
     Dosage: 1900 MILLIGRAM/SQ. METER, CYCLE 1, ZFOLFIRI
     Route: 065
  15. LEUCOVORIN                         /00566701/ [Suspect]
     Active Substance: LEUCOVORIN
     Indication: COLON CANCER METASTATIC
     Dosage: UNK, FOLFOX
     Route: 065

REACTIONS (3)
  - Fatigue [Unknown]
  - Malignant neoplasm progression [Unknown]
  - Colon cancer recurrent [Unknown]
